FAERS Safety Report 9878062 (Version 2)
Quarter: 2014Q2

REPORT INFORMATION
  Report Type: Spontaneous
  Country: US (occurrence: None)
  Receive Date: 20140204
  Receipt Date: 20140609
  Transmission Date: 20141212
  Serious: Yes (Other)
  Sender: FDA-Public Use
  Company Number: 2014-US-000859

PATIENT
  Age: 70 Year
  Sex: Male

DRUGS (8)
  1. XYREM [Suspect]
     Indication: NARCOLEPSY
     Route: 048
     Dates: start: 1983
  2. XYREM [Suspect]
     Indication: CATAPLEXY
     Route: 048
     Dates: start: 1983
  3. ATORVASTATIN (ATORVASTATIN CALCIUM) [Concomitant]
  4. CIALIS (TADALAFIL) [Concomitant]
  5. TRICOR (FENOFIBRATE) [Concomitant]
  6. SYNTHROID (LEVOTHYROXINE SODIUM) [Concomitant]
  7. VICODIN (HYDROCODONE BITARTRATE, PARACETAMOL) [Concomitant]
  8. LOSARTAN/HCTZ GT (HYDROCHLOROTHIAZIDE, LOSARTAN POTASSIUM) [Concomitant]

REACTIONS (2)
  - Coronary artery disease [None]
  - X-ray abnormal [None]
